FAERS Safety Report 16758850 (Version 1)
Quarter: 2019Q3

REPORT INFORMATION
  Report Type: Spontaneous
  Country: US (occurrence: US)
  Receive Date: 20190830
  Receipt Date: 20190830
  Transmission Date: 20191005
  Serious: Yes (Hospitalization, Other)
  Sender: FDA-Public Use
  Company Number: US-BION-008207

PATIENT
  Age: 32 Year
  Sex: Male

DRUGS (2)
  1. GABAPENTIN. [Concomitant]
     Active Substance: GABAPENTIN
     Dosage: UNKNOWN AMOUNT
  2. LOPERAMIDE HYDROCHLORIDE. [Suspect]
     Active Substance: LOPERAMIDE HYDROCHLORIDE
     Dosage: MULTIPLE EMPTY BOXES OF LOPERAMIDE WERE FOUND IN HIS BACKPACK, OVER 100 MG WAS TAKEN

REACTIONS (10)
  - Bundle branch block left [Recovered/Resolved]
  - Agitation [Recovered/Resolved]
  - Sinus tachycardia [Recovered/Resolved]
  - Aggression [Recovered/Resolved]
  - Overdose [Unknown]
  - Tachypnoea [Recovered/Resolved]
  - Respiratory distress [Recovered/Resolved]
  - Hyperhidrosis [Recovered/Resolved]
  - Ventricular hypokinesia [Recovered/Resolved]
  - Delirium [Recovered/Resolved]
